FAERS Safety Report 18516808 (Version 9)
Quarter: 2022Q1

REPORT INFORMATION
  Report Type: Report from Study
  Country: CA (occurrence: CA)
  Receive Date: 20201118
  Receipt Date: 20220211
  Transmission Date: 20220423
  Serious: Yes (Hospitalization)
  Sender: FDA-Public Use
  Company Number: NVSC2020CA226309

PATIENT
  Sex: Female

DRUGS (8)
  1. COSENTYX [Suspect]
     Active Substance: SECUKINUMAB
     Indication: Psoriatic arthropathy
     Dosage: 150 MG, QW (WEEKS 0,1,2 AND 3)
     Route: 058
     Dates: start: 20200806
  2. COSENTYX [Suspect]
     Active Substance: SECUKINUMAB
     Dosage: 300 MG, QMO
     Route: 058
     Dates: end: 20201022
  3. COSENTYX [Suspect]
     Active Substance: SECUKINUMAB
     Dosage: UNK
     Route: 065
     Dates: end: 202102
  4. COSENTYX [Suspect]
     Active Substance: SECUKINUMAB
     Dosage: 300 MG EVERY 5 WEEKS
     Route: 065
  5. BACLOFEN [Concomitant]
     Active Substance: BACLOFEN
     Indication: Product used for unknown indication
     Dosage: UNK
     Route: 065
  6. RIVOTRIL [Concomitant]
     Active Substance: CLONAZEPAM
     Indication: Product used for unknown indication
     Dosage: UNK
     Route: 065
  7. HYDROMORPHONE [Concomitant]
     Active Substance: HYDROMORPHONE
     Indication: Product used for unknown indication
     Dosage: UNK
     Route: 065
  8. PREDNISONE [Concomitant]
     Active Substance: PREDNISONE
     Indication: Product used for unknown indication
     Dosage: UNK
     Route: 065
     Dates: start: 20210924, end: 20211029

REACTIONS (35)
  - Joint effusion [Unknown]
  - Meningitis [Unknown]
  - Fall [Unknown]
  - Joint dislocation [Unknown]
  - Femur fracture [Unknown]
  - Arthropathy [Unknown]
  - Alopecia [Unknown]
  - Nausea [Unknown]
  - Decreased appetite [Unknown]
  - Cerebral disorder [Unknown]
  - Bone pain [Unknown]
  - Malaise [Unknown]
  - Urinary tract infection [Unknown]
  - Pyrexia [Unknown]
  - Swelling [Unknown]
  - Pain [Not Recovered/Not Resolved]
  - Quality of life decreased [Not Recovered/Not Resolved]
  - Arthritis [Unknown]
  - Skin mass [Unknown]
  - Hypoaesthesia [Unknown]
  - Headache [Unknown]
  - Fatigue [Not Recovered/Not Resolved]
  - Feeling abnormal [Unknown]
  - Skin exfoliation [Unknown]
  - Skin plaque [Unknown]
  - Rhinorrhoea [Unknown]
  - Diarrhoea [Unknown]
  - Gait disturbance [Unknown]
  - Movement disorder [Unknown]
  - Dysstasia [Unknown]
  - Psoriasis [Recovered/Resolved]
  - Psoriasis [Unknown]
  - Product prescribing error [Unknown]
  - Inappropriate schedule of product administration [Unknown]
  - Therapeutic product effect incomplete [Unknown]

NARRATIVE: CASE EVENT DATE: 20200101
